FAERS Safety Report 8376399-0 (Version None)
Quarter: 2012Q2

REPORT INFORMATION
  Report Type: 
  Country: None (occurrence: None)
  Receive Date: 20120522
  Receipt Date: 20120518
  Transmission Date: 20120825
  Serious: Yes (Death)
  Sender: FDA-Public Use
  Company Number: US-CELGENEUS-163-21880-12050750

PATIENT
  Sex: Male

DRUGS (10)
  1. GLYBURIDE [Concomitant]
     Dosage: 1.25 MILLIGRAM
     Route: 065
  2. PRILOSEC [Concomitant]
     Dosage: 40 MILLIGRAM
     Route: 065
  3. VALTREX [Concomitant]
     Dosage: 500 MILLIGRAM
     Route: 048
  4. REVLIMID [Suspect]
     Indication: MULTIPLE MYELOMA
     Dosage: 25 MILLIGRAM
     Route: 048
     Dates: start: 20120406, end: 20120421
  5. COUMADIN [Concomitant]
     Dosage: 4 MILLIGRAM
     Route: 048
  6. FEOSOL [Concomitant]
     Dosage: 325 MILLIGRAM
     Route: 065
  7. OSCAL +D [Concomitant]
     Dosage: 500 MILLIGRAM
     Route: 065
  8. DIGOXIN [Concomitant]
     Dosage: .25 MILLIGRAM
     Route: 065
  9. SYNTHROID [Concomitant]
     Dosage: 50 MICROGRAM
     Route: 065
  10. PROSTAT [Concomitant]
     Dosage: 64 30CC
     Route: 048

REACTIONS (1)
  - MULTIPLE MYELOMA [None]
